FAERS Safety Report 4542661-2 (Version None)
Quarter: 2004Q4

REPORT INFORMATION
  Report Type: 
  Country: None (occurrence: None)
  Receive Date: 20041230
  Receipt Date: 20040705
  Transmission Date: 20050328
  Serious: Yes (Hospitalization)
  Sender: FDA-Public Use
  Company Number: FR-MERCK-0407FRA00013

PATIENT
  Age: 77 Year
  Sex: Male
  Weight: 76 kg

DRUGS (4)
  1. VIOXX [Suspect]
     Route: 048
     Dates: start: 20040215, end: 20040610
  2. ZOCOR [Suspect]
     Route: 048
  3. GINKGO BILOBA EXTRACT [Suspect]
     Route: 048
  4. HYDROCHLOROTHIAZIDE AND LISINOPRIL [Suspect]
     Indication: HYPERTENSION
     Route: 048

REACTIONS (5)
  - ACQUIRED HAEMOPHILIA [None]
  - COAGULATION FACTOR VIII LEVEL DECREASED [None]
  - COAGULATION TIME PROLONGED [None]
  - FACTOR VIII INHIBITION [None]
  - HAEMATOMA [None]
